FAERS Safety Report 4578069-3 (Version None)
Quarter: 2005Q1

REPORT INFORMATION
  Report Type: 
  Country: None (occurrence: None)
  Receive Date: 20050209
  Receipt Date: 20050126
  Transmission Date: 20050727
  Serious: Yes (Other)
  Sender: FDA-Public Use
  Company Number: FR_050105718

PATIENT
  Age: 66 Year
  Sex: Female
  Weight: 61 kg

DRUGS (1)
  1. EVISTA [Suspect]
     Indication: OSTEOPOROSIS
     Dosage: 60 MG DAY
     Dates: start: 20020101, end: 20040901

REACTIONS (2)
  - BREAST CANCER FEMALE [None]
  - OESTROGEN RECEPTOR ASSAY POSITIVE [None]
